FAERS Safety Report 10995450 (Version 3)
Quarter: 2015Q3

REPORT INFORMATION
  Report Type: Spontaneous
  Country: GB (occurrence: GB)
  Receive Date: 20150407
  Receipt Date: 20150730
  Transmission Date: 20151125
  Serious: Yes (Hospitalization, Other)
  Sender: FDA-Public Use
  Company Number: PHFR2015GB002884

PATIENT
  Age: 50 Year
  Sex: Male

DRUGS (3)
  1. PARACETAMOL [Concomitant]
     Active Substance: ACETAMINOPHEN
     Indication: PRODUCT USED FOR UNKNOWN INDICATION
     Dosage: 500 MG, PRN
     Route: 065
  2. CLOZARIL [Suspect]
     Active Substance: CLOZAPINE
     Indication: SCHIZOPHRENIA
     Route: 048
     Dates: start: 20071015
  3. CLOZARIL [Suspect]
     Active Substance: CLOZAPINE
     Dosage: 550 MG, QD
     Route: 048

REACTIONS (6)
  - Seizure [Recovered/Resolved]
  - Fall [Recovered/Resolved with Sequelae]
  - Subdural haematoma [Recovered/Resolved with Sequelae]
  - Loss of consciousness [Recovered/Resolved]
  - Constipation [Recovered/Resolved]
  - Head injury [Recovered/Resolved with Sequelae]

NARRATIVE: CASE EVENT DATE: 20150330
